FAERS Safety Report 12187325 (Version 1)
Quarter: 2016Q1

REPORT INFORMATION
  Report Type: Report from Study
  Country: US (occurrence: US)
  Receive Date: 20160317
  Receipt Date: 20160317
  Transmission Date: 20160526
  Serious: Yes (Other)
  Sender: FDA-Public Use
  Company Number: US-BIOGEN-2013BI094903

PATIENT
  Age: 57 Year
  Sex: Female

DRUGS (2)
  1. AVONEX [Suspect]
     Active Substance: INTERFERON BETA-1A
     Route: 030
     Dates: start: 2004
  2. AVONEX [Suspect]
     Active Substance: INTERFERON BETA-1A
     Indication: MULTIPLE SCLEROSIS
     Route: 030
     Dates: start: 20030101, end: 2004

REACTIONS (15)
  - Facial wasting [Recovered/Resolved]
  - Abdominal distension [Not Recovered/Not Resolved]
  - Neuropathy peripheral [Recovered/Resolved]
  - Carotid artery occlusion [Not Recovered/Not Resolved]
  - Weight increased [Recovered/Resolved]
  - Weight decreased [Not Recovered/Not Resolved]
  - Dyspnoea [Not Recovered/Not Resolved]
  - Blood iron decreased [Not Recovered/Not Resolved]
  - Pericardial effusion [Unknown]
  - Cardiac failure congestive [Recovered/Resolved]
  - Thyroid mass [Not Recovered/Not Resolved]
  - Pain in extremity [Recovered/Resolved]
  - Haemoglobin decreased [Not Recovered/Not Resolved]
  - Skin disorder [Recovered/Resolved]
  - Blood thyroid stimulating hormone decreased [Not Recovered/Not Resolved]

NARRATIVE: CASE EVENT DATE: 2010
